FAERS Safety Report 10040788 (Version 2)
Quarter: 2015Q2

REPORT INFORMATION
  Report Type: Spontaneous
  Country: CH (occurrence: CH)
  Receive Date: 20140327
  Receipt Date: 20150507
  Transmission Date: 20150821
  Serious: Yes (Other)
  Sender: FDA-Public Use
  Company Number: PHHY2014CH034033

PATIENT
  Age: 38 Year
  Sex: Male

DRUGS (6)
  1. TIZANIDINE (TIZANIDINE) [Concomitant]
     Active Substance: TIZANIDINE
     Indication: SPINAL OSTEOARTHRITIS
     Route: 065
  2. METAMIZOL [Concomitant]
     Active Substance: METAMIZOLE SODIUM
     Indication: SPINAL OSTEOARTHRITIS
     Route: 065
  3. TRAMADOL [Concomitant]
     Active Substance: TRAMADOL
     Indication: SPINAL OSTEOARTHRITIS
     Dosage: 250 MG, QD
     Route: 065
  4. PARACETAMOL [Concomitant]
     Active Substance: ACETAMINOPHEN
     Indication: SPINAL OSTEOARTHRITIS
     Route: 065
  5. BEZAFIBRATE [Concomitant]
     Active Substance: BEZAFIBRATE
     Indication: PRODUCT USED FOR UNKNOWN INDICATION
     Route: 065
  6. LOPERAMIDE [Suspect]
     Active Substance: LOPERAMIDE
     Indication: DIARRHOEA
     Dosage: 20 DF, QD

REACTIONS (5)
  - Agitation [Unknown]
  - Aggression [Unknown]
  - Drug abuse [Unknown]
  - Anger [Unknown]
  - Incorrect dose administered [Unknown]
